FAERS Safety Report 4397851-9 (Version None)
Quarter: 2004Q2

REPORT INFORMATION
  Report Type: 
  Country: None (occurrence: None)
  Receive Date: 20040621
  Receipt Date: 20040408
  Transmission Date: 20050107
  Serious: Yes (Hospitalization)
  Sender: FDA-Public Use
  Company Number: USA-2004-0014417

PATIENT
  Age: 66 Year
  Sex: Female

DRUGS (7)
  1. OXYCONTIN [Suspect]
     Indication: PAIN
     Dosage: UNK MG, UNK; UNKNOWN
     Route: 065
  2. OXYIR (OXYCODONE HYDROCHLORIDE) [Suspect]
     Indication: PAIN
     Dosage: 10 MG, UNK; ORAL
     Route: 048
  3. TOPROL-XL [Concomitant]
  4. DULCOLAX [Concomitant]
  5. CHLOROPERAZINE [Concomitant]
  6. FAMOTIDINE [Concomitant]
  7. WARFARIN SODIUM [Concomitant]

REACTIONS (3)
  - CONSTIPATION [None]
  - INSOMNIA [None]
  - PAIN [None]
